FAERS Safety Report 23848522 (Version 1)
Quarter: 2024Q2

REPORT INFORMATION
  Report Type: Spontaneous
  Country: BR (occurrence: BR)
  Receive Date: 20240513
  Receipt Date: 20240513
  Transmission Date: 20240716
  Serious: Yes (Other)
  Sender: FDA-Public Use
  Company Number: BR-MYLANLABS-2024M1042879

PATIENT
  Age: 64 Year
  Sex: Male
  Weight: 89 kg

DRUGS (4)
  1. SERTRALINE [Suspect]
     Active Substance: SERTRALINE HYDROCHLORIDE
     Indication: Hypertension
     Dosage: 1 DOSAGE FORM, QD (ONE PILL A DAY)
     Route: 048
     Dates: start: 2021
  2. INFLIXIMAB [Suspect]
     Active Substance: INFLIXIMAB
     Indication: Colitis ulcerative
     Dosage: 5 DOSAGE FORM (5 AMPOULES EVERY 60 DAY)
     Route: 042
     Dates: start: 20230529
  3. INFLIXIMAB [Suspect]
     Active Substance: INFLIXIMAB
     Indication: Colitis ulcerative
     Dosage: 5 DOSAGE FORM (5 AMPOULES EVERY 60 DAY)
     Route: 042
     Dates: start: 20240416
  4. ATENOLOL [Concomitant]
     Active Substance: ATENOLOL
     Indication: Hypertension
     Dosage: 1 DOSAGE FORM, QD (ONE PILL A DAY)
     Route: 048
     Dates: start: 2021

REACTIONS (4)
  - Drug hypersensitivity [Not Recovered/Not Resolved]
  - Colitis [Not Recovered/Not Resolved]
  - Blood pressure systolic increased [Not Recovered/Not Resolved]
  - Off label use [Not Recovered/Not Resolved]

NARRATIVE: CASE EVENT DATE: 20210101
